FAERS Safety Report 20920875 (Version 1)
Quarter: 2022Q2

REPORT INFORMATION
  Report Type: Spontaneous
  Country: US (occurrence: None)
  Receive Date: 20220606
  Receipt Date: 20220606
  Transmission Date: 20220721
  Serious: No
  Sender: FDA-Public Use
  Company Number: None

PATIENT
  Age: 32 Year
  Sex: Female
  Weight: 41.4 kg

DRUGS (1)
  1. RECLAST [Suspect]
     Active Substance: ZOLEDRONIC ACID
     Indication: Senile osteoporosis
     Dosage: OTHER FREQUENCY : ONCE;?
     Dates: start: 20220525, end: 20220525

REACTIONS (2)
  - Anxiety [None]
  - Muscle strain [None]

NARRATIVE: CASE EVENT DATE: 20220526
